FAERS Safety Report 10979185 (Version 1)
Quarter: 2015Q2

REPORT INFORMATION
  Report Type: Spontaneous
  Country: JP (occurrence: JP)
  Receive Date: 20150402
  Receipt Date: 20150402
  Transmission Date: 20150821
  Serious: Yes (Death)
  Sender: FDA-Public Use
  Company Number: JP-TEVA-551290ISR

PATIENT
  Sex: Male
  Weight: 37 kg

DRUGS (5)
  1. E-FEN BUCCAL [Suspect]
     Active Substance: FENTANYL CITRATE
     Indication: BREAKTHROUGH PAIN
     Dosage: 50 MICROGRAM DAILY;
     Route: 002
     Dates: start: 20141209, end: 20141211
  2. OXYCONTIN [Concomitant]
     Active Substance: OXYCODONE HYDROCHLORIDE
     Indication: CANCER PAIN
     Dosage: 10 MILLIGRAM DAILY;
     Route: 048
     Dates: start: 20141208, end: 20141211
  3. VOLTAREN [Concomitant]
     Active Substance: DICLOFENAC SODIUM
     Indication: CANCER PAIN
     Dosage: 20 MILLIGRAM DAILY;
     Route: 054
     Dates: start: 20141121, end: 20141209
  4. LOXONIN [Concomitant]
     Active Substance: LOXOPROFEN SODIUM
     Indication: CANCER PAIN
     Route: 048
     Dates: start: 20141121, end: 20141209
  5. FENTOS [Concomitant]
     Active Substance: FENTANYL
     Indication: CANCER PAIN
     Dosage: 1 MILLIGRAM DAILY;
     Route: 062
     Dates: start: 20141211, end: 20150109

REACTIONS (1)
  - Pancreatic carcinoma [Fatal]
